FAERS Safety Report 6646421-8 (Version None)
Quarter: 2010Q1

REPORT INFORMATION
  Report Type: 
  Country: None (occurrence: None)
  Receive Date: 20100322
  Receipt Date: 20100322
  Transmission Date: 20100710
  Serious: Yes (Other)
  Sender: FDA-Public Use
  Company Number: None

PATIENT
  Sex: Male
  Weight: 72.5755 kg

DRUGS (2)
  1. ALBUTEROL SULFATE AUTOHALER [Suspect]
     Indication: CHRONIC OBSTRUCTIVE PULMONARY DISEASE
     Dosage: 2.5MG EVERY 4 HRS INHAL
     Route: 055
     Dates: start: 20100211
  2. IPRATROPIUM BROMIDE [Suspect]
     Indication: CHRONIC OBSTRUCTIVE PULMONARY DISEASE
     Dosage: 0.5MG EVERY 4 HRS. INHALE
     Route: 055
     Dates: start: 20100211

REACTIONS (1)
  - DRY MOUTH [None]
